FAERS Safety Report 8598404-9 (Version None)
Quarter: 2012Q3

REPORT INFORMATION
  Report Type: 
  Country: None (occurrence: None)
  Receive Date: 20120816
  Receipt Date: 20120807
  Transmission Date: 20120928
  Serious: Yes (Other)
  Sender: FDA-Public Use
  Company Number: TW-ABBOTT-12P-153-0966331-00

PATIENT
  Age: 69 Year
  Sex: Female
  Weight: 58 kg

DRUGS (11)
  1. MONTELUKAST [Concomitant]
     Indication: PRODUCT USED FOR UNKNOWN INDICATION
     Route: 048
     Dates: start: 20120320
  2. MACALOL [Concomitant]
     Indication: RHEUMATOID ARTHRITIS
     Dosage: 0.25UG
     Route: 048
     Dates: start: 20120320
  3. GBL-GENIQUIN-200 [Concomitant]
     Indication: RHEUMATOID ARTHRITIS
     Route: 048
     Dates: start: 20120320
  4. FOLIC ACID [Concomitant]
     Indication: RHEUMATOID ARTHRITIS
     Route: 048
     Dates: start: 20120320
  5. CELECOXIB [Concomitant]
     Indication: RHEUMATOID ARTHRITIS
     Route: 048
     Dates: start: 20120320
  6. EVOHA SERETIDE [Concomitant]
     Indication: PRODUCT USED FOR UNKNOWN INDICATION
     Route: 055
     Dates: start: 20120320
  7. HUMIRA [Suspect]
     Indication: RHEUMATOID ARTHRITIS
     Route: 058
     Dates: start: 20100622, end: 20120807
  8. ULTRACET [Concomitant]
     Indication: RHEUMATOID ARTHRITIS
     Dosage: AT BEDTIME
     Route: 048
     Dates: start: 20120320
  9. METHOTREXATE [Concomitant]
     Indication: RHEUMATOID ARTHRITIS
     Route: 048
     Dates: start: 20120320
  10. CALCIUM CARBONATE [Concomitant]
     Indication: RHEUMATOID ARTHRITIS
     Route: 048
     Dates: start: 20120320
  11. METISONE [Concomitant]
     Indication: RHEUMATOID ARTHRITIS
     Route: 048
     Dates: start: 20120710

REACTIONS (2)
  - BRONCHIECTASIS [None]
  - ATYPICAL MYCOBACTERIAL INFECTION [None]
